FAERS Safety Report 17290373 (Version 5)
Quarter: 2021Q3

REPORT INFORMATION
  Report Type: Report from Study
  Country: None (occurrence: US)
  Receive Date: 20200121
  Receipt Date: 20210817
  Transmission Date: 20211014
  Serious: Yes (Hospitalization, Other)
  Sender: FDA-Public Use
  Company Number: US-ABBVIE-20K-163-3235215-00

PATIENT
  Age: 49 Year
  Sex: Male

DRUGS (6)
  1. FOLIC ACID. [Concomitant]
     Active Substance: FOLIC ACID
     Indication: PRODUCT USED FOR UNKNOWN INDICATION
  2. MELOXICAM. [Concomitant]
     Active Substance: MELOXICAM
     Indication: INFLAMMATION
  3. HUMIRA [Suspect]
     Active Substance: ADALIMUMAB
     Route: 058
     Dates: start: 2020
  4. ENBREL [Concomitant]
     Active Substance: ETANERCEPT
     Indication: PRODUCT USED FOR UNKNOWN INDICATION
  5. HUMIRA [Suspect]
     Active Substance: ADALIMUMAB
     Indication: RHEUMATOID ARTHRITIS
     Dosage: CITRATE FREE
     Route: 058
     Dates: start: 201910, end: 2020
  6. METHOTREXATE. [Concomitant]
     Active Substance: METHOTREXATE
     Indication: RHEUMATOID ARTHRITIS

REACTIONS (22)
  - Oesophageal perforation [Recovering/Resolving]
  - Malignant melanoma [Recovering/Resolving]
  - Hiatus hernia [Recovering/Resolving]
  - Pain in extremity [Not Recovered/Not Resolved]
  - Stress [Unknown]
  - Neck mass [Unknown]
  - Pain [Unknown]
  - Injury associated with device [Recovered/Resolved]
  - Spinal stenosis [Unknown]
  - Wrong technique in product usage process [Recovered/Resolved]
  - Arthralgia [Recovered/Resolved]
  - Tendonitis [Recovered/Resolved]
  - Food intolerance [Recovered/Resolved]
  - Pulmonary embolism [Recovering/Resolving]
  - Intervertebral disc protrusion [Unknown]
  - Rib fracture [Unknown]
  - Arthralgia [Not Recovered/Not Resolved]
  - Discomfort [Recovering/Resolving]
  - Gastrooesophageal reflux disease [Recovering/Resolving]
  - Renal impairment [Not Recovered/Not Resolved]
  - Dehydration [Recovered/Resolved]
  - Pain in extremity [Recovered/Resolved]

NARRATIVE: CASE EVENT DATE: 20191231
